FAERS Safety Report 24213564 (Version 5)
Quarter: 2025Q4

REPORT INFORMATION
  Report Type: Report from Study
  Country: US (occurrence: US)
  Receive Date: 20240815
  Receipt Date: 20251118
  Transmission Date: 20260117
  Serious: Yes (Hospitalization, Other)
  Sender: TAKEDA
  Company Number: US-TAKEDA-2023TUS111084

PATIENT
  Sex: Female
  Weight: 84 kg

DRUGS (9)
  1. TEDUGLUTIDE [Suspect]
     Active Substance: TEDUGLUTIDE
     Indication: Short-bowel syndrome
     Dosage: 0.2 MILLILITER, QD
     Dates: start: 202310
  2. TEDUGLUTIDE [Suspect]
     Active Substance: TEDUGLUTIDE
     Indication: Malabsorption
     Dosage: 0.4 MILLILITER, QD
     Dates: end: 202310
  3. TEDUGLUTIDE [Suspect]
     Active Substance: TEDUGLUTIDE
     Dosage: UNK, QD
     Dates: start: 202311
  4. TEDUGLUTIDE [Suspect]
     Active Substance: TEDUGLUTIDE
     Dosage: 2 MILLIGRAM, QD
     Dates: start: 202406
  5. TEDUGLUTIDE [Suspect]
     Active Substance: TEDUGLUTIDE
     Dosage: 0.4 MILLILITER, QD
     Dates: end: 202406
  6. TEDUGLUTIDE [Suspect]
     Active Substance: TEDUGLUTIDE
     Dosage: UNK
  7. TEDUGLUTIDE [Suspect]
     Active Substance: TEDUGLUTIDE
     Dosage: 0.2 MILLILITER, QD
  8. OCTREOTIDE [Suspect]
     Active Substance: OCTREOTIDE
     Indication: Short-bowel syndrome
     Dosage: UNK
  9. ALLOPURINOL [Concomitant]
     Active Substance: ALLOPURINOL
     Indication: Gout
     Dosage: UNK

REACTIONS (24)
  - Vascular device infection [Recovering/Resolving]
  - Muscle spasms [Recovering/Resolving]
  - Pancytopenia [Unknown]
  - Cholecystitis infective [Unknown]
  - Solar lentigo [Unknown]
  - Dehydration [Unknown]
  - Pain [Unknown]
  - Constipation [Unknown]
  - Gastroenteritis viral [Unknown]
  - Faecal volume increased [Unknown]
  - Blood glucose decreased [Unknown]
  - Gout [Unknown]
  - Needle issue [Unknown]
  - Extra dose administered [Unknown]
  - Product dose omission issue [Unknown]
  - Incorrect dose administered [Unknown]
  - Rash erythematous [Unknown]
  - Illness [Unknown]
  - Rash [Recovered/Resolved]
  - Injection site erythema [Recovered/Resolved]
  - Injection site pain [Unknown]
  - Abdominal distension [Unknown]
  - Nasopharyngitis [Unknown]
  - Hypersensitivity [Unknown]
